FAERS Safety Report 14134316 (Version 1)
Quarter: 2017Q4

REPORT INFORMATION
  Report Type: Spontaneous
  Country: US (occurrence: US)
  Receive Date: 20171026
  Receipt Date: 20171026
  Transmission Date: 20180321
  Serious: No
  Sender: FDA-Public Use
  Company Number: US-TESARO, INC.-US-2017TSO02709

PATIENT

DRUGS (1)
  1. ZEJULA [Suspect]
     Active Substance: NIRAPARIB
     Indication: OVARIAN CANCER STAGE III
     Dosage: 300 MG, QD
     Route: 048
     Dates: start: 20170807, end: 20170813

REACTIONS (15)
  - Adverse reaction [Unknown]
  - Insomnia [Unknown]
  - Appetite disorder [Unknown]
  - Dyspnoea [Unknown]
  - General physical health deterioration [Unknown]
  - Fall [Unknown]
  - Asthenia [Unknown]
  - Dysphonia [Unknown]
  - Nausea [Unknown]
  - Back pain [Recovered/Resolved]
  - Loss of personal independence in daily activities [Unknown]
  - Dizziness [Not Recovered/Not Resolved]
  - Fatigue [Not Recovered/Not Resolved]
  - Muscle twitching [Unknown]
  - Constipation [Unknown]

NARRATIVE: CASE EVENT DATE: 201708
